FAERS Safety Report 15047826 (Version 2)
Quarter: 2018Q3

REPORT INFORMATION
  Report Type: Report from Study
  Country: US (occurrence: US)
  Receive Date: 20180621
  Receipt Date: 20180710
  Transmission Date: 20181010
  Serious: No
  Sender: FDA-Public Use
  Company Number: US-UNITED THERAPEUTICS-UNT-2018-008985

PATIENT
  Sex: Female

DRUGS (3)
  1. ORAL TREPROSTINIL [Suspect]
     Active Substance: TREPROSTINIL
     Dosage: 0.5 MG, TID
     Route: 048
  2. PLAVIX [Suspect]
     Active Substance: CLOPIDOGREL BISULFATE
     Indication: PRODUCT USED FOR UNKNOWN INDICATION
     Route: 065
  3. ORAL TREPROSTINIL [Suspect]
     Active Substance: TREPROSTINIL
     Indication: PULMONARY ARTERIAL HYPERTENSION
     Dosage: 0.25 MG, TID
     Route: 048
     Dates: start: 20180523

REACTIONS (6)
  - Abdominal pain upper [Unknown]
  - Pain in extremity [Unknown]
  - Skin discolouration [Unknown]
  - Somnolence [Unknown]
  - Ocular hyperaemia [Unknown]
  - Asthenia [Unknown]

NARRATIVE: CASE EVENT DATE: 2018
